FAERS Safety Report 18276080 (Version 2)
Quarter: 2025Q1

REPORT INFORMATION
  Report Type: Report from Study
  Country: US (occurrence: US)
  Receive Date: 20200916
  Receipt Date: 20250203
  Transmission Date: 20250409
  Serious: No
  Sender: AMGEN
  Company Number: US-AMGEN-USASP2020149944

PATIENT
  Age: 22 Year
  Sex: Male

DRUGS (6)
  1. OTEZLA [Suspect]
     Active Substance: APREMILAST
     Indication: Psoriasis
     Dosage: 30 MILLIGRAM, BID
     Route: 048
     Dates: start: 202005, end: 2020
  2. OTEZLA [Suspect]
     Active Substance: APREMILAST
     Dosage: 30 MILLIGRAM, QD
     Route: 048
     Dates: start: 2020
  3. CLOBETASOL [Concomitant]
     Active Substance: CLOBETASOL
     Dosage: UNK, BID (REAM AND SOLUTION)
     Route: 061
  4. FLUOCINOLONE [Concomitant]
     Active Substance: FLUOCINOLONE
     Route: 061
  5. MOMETASONE [Concomitant]
     Active Substance: MOMETASONE
     Route: 061
  6. NYSTATIN [Concomitant]
     Active Substance: NYSTATIN
     Route: 061

REACTIONS (2)
  - Therapeutic product effect decreased [Unknown]
  - Vomiting [Unknown]

NARRATIVE: CASE EVENT DATE: 20200101
